FAERS Safety Report 11276076 (Version 1)
Quarter: 2015Q2

REPORT INFORMATION
  Report Type: Spontaneous
  Country: US (occurrence: None)
  Receive Date: 20150625
  Receipt Date: 20150625
  Transmission Date: 20150821
  Serious: No
  Sender: FDA-Public Use
  Company Number: A-NJ2015-115391

PATIENT
  Age: 35 Year
  Sex: Female

DRUGS (7)
  1. OPSUMIT [Suspect]
     Active Substance: MACITENTAN
     Indication: PULMONARY ARTERIAL HYPERTENSION
     Route: 048
  2. LASIX [Concomitant]
     Active Substance: FUROSEMIDE
  3. POTASSIUM (POTASSIUM) [Concomitant]
     Active Substance: POTASSIUM
  4. MOTRIN [Concomitant]
     Active Substance: IBUPROFEN
  5. LYSTEDA (TRANEXAMIC ACID) [Concomitant]
  6. WARFARIN (WARFARIN) [Concomitant]
     Active Substance: WARFARIN
  7. LORTAB [Concomitant]
     Active Substance: ACETAMINOPHEN\HYDROCODONE BITARTRATE

REACTIONS (3)
  - Weight increased [None]
  - Oedema [None]
  - Abdominal distension [None]

NARRATIVE: CASE EVENT DATE: 201503
